FAERS Safety Report 7522885-2 (Version None)
Quarter: 2011Q2

REPORT INFORMATION
  Report Type: 
  Country: None (occurrence: None)
  Receive Date: 20110603
  Receipt Date: 20110526
  Transmission Date: 20111010
  Serious: No
  Sender: FDA-Public Use
  Company Number: PHHY2011JP47750

PATIENT
  Age: 67 Year
  Sex: Female

DRUGS (1)
  1. LAMISIL [Suspect]
     Dosage: 250 MG DAILY
     Route: 048

REACTIONS (1)
  - INCORRECT DOSE ADMINISTERED [None]
